FAERS Safety Report 16791630 (Version 1)
Quarter: 2019Q3

REPORT INFORMATION
  Report Type: Report from Study
  Country: IT (occurrence: IT)
  Receive Date: 20190910
  Receipt Date: 20190910
  Transmission Date: 20191005
  Serious: Yes (Hospitalization)
  Sender: FDA-Public Use
  Company Number: IT-PFIZER INC-2019301034

PATIENT
  Age: 83 Year
  Sex: Female
  Weight: 80.5 kg

DRUGS (12)
  1. LORAZEPAM. [Concomitant]
     Active Substance: LORAZEPAM
     Indication: PROPHYLAXIS
     Dosage: 1 MG, DAILY
     Route: 048
     Dates: start: 20160928
  2. BISOPROLOL [Concomitant]
     Active Substance: BISOPROLOL
     Indication: ATRIAL FIBRILLATION
     Dosage: 7.5 MG, DAILY
     Route: 048
     Dates: start: 20180430
  3. TRAVOPROST. [Concomitant]
     Active Substance: TRAVOPROST
     Indication: PROPHYLAXIS
     Dosage: 1 GTT, AS NEEDED
     Route: 047
     Dates: start: 2015
  4. PANTOPRAZOLE [Concomitant]
     Active Substance: PANTOPRAZOLE
     Indication: PROPHYLAXIS
     Dosage: 40 MG, DAILY
     Route: 048
     Dates: start: 20150807
  5. HYDROCHLOROTHIAZIDE. [Concomitant]
     Active Substance: HYDROCHLOROTHIAZIDE
     Indication: PROPHYLAXIS
     Dosage: 1 TAB, DAILY
     Route: 048
     Dates: start: 2017
  6. BOSUTINIB [Suspect]
     Active Substance: BOSUTINIB
     Indication: CHRONIC MYELOID LEUKAEMIA
     Dosage: 400 MG, DAILY
     Route: 048
     Dates: start: 20150211, end: 20150226
  7. BOSUTINIB [Suspect]
     Active Substance: BOSUTINIB
     Dosage: 300 MG, DAILY, 3 TABLETS TAKEN AT LUNCH TIME
     Route: 048
     Dates: start: 20150311
  8. ESCITALOPRAM [Concomitant]
     Active Substance: ESCITALOPRAM OXALATE
     Dosage: 8 GTT, DAILY
     Route: 048
     Dates: start: 20180916
  9. RAMIPRIL. [Concomitant]
     Active Substance: RAMIPRIL
     Dosage: 1 CAPS, DAILY
     Route: 048
     Dates: start: 20190129
  10. BECLOMETHASONE [Concomitant]
     Active Substance: BECLOMETHASONE
     Dosage: 1 BOTTLES, 3X/DAY
     Route: 055
     Dates: start: 20190129
  11. FUROSEMIDE. [Concomitant]
     Active Substance: FUROSEMIDE
     Indication: HYPERTENSION
     Dosage: 125 MG, DAILY
     Route: 048
     Dates: start: 2017
  12. SPIRONOLACTONE. [Concomitant]
     Active Substance: SPIRONOLACTONE
     Dosage: 1 CAP, DAILY
     Route: 048
     Dates: start: 20190129

REACTIONS (1)
  - Cardiac failure [Not Recovered/Not Resolved]

NARRATIVE: CASE EVENT DATE: 20190703
